FAERS Safety Report 16933256 (Version 3)
Quarter: 2019Q4

REPORT INFORMATION
  Report Type: Spontaneous
  Country: FR (occurrence: FR)
  Receive Date: 20191018
  Receipt Date: 20191225
  Transmission Date: 20200122
  Serious: Yes (Other)
  Sender: FDA-Public Use
  Company Number: FR-AUROBINDO-AUR-APL-2019-067577

PATIENT
  Age: 39 Year
  Sex: Female
  Weight: 55 kg

DRUGS (11)
  1. BENDAMUSTINE HYDROCHLORIDE. [Suspect]
     Active Substance: BENDAMUSTINE HYDROCHLORIDE
     Indication: CHRONIC LYMPHOCYTIC LEUKAEMIA
     Dosage: UNK, ONE CYCLE
     Route: 042
  2. AMPHOTERICIN B. [Suspect]
     Active Substance: AMPHOTERICIN B
     Indication: ASPERGILLUS INFECTION
  3. VORICONAZOLE. [Suspect]
     Active Substance: VORICONAZOLE
     Dosage: 300 MILLIGRAM, ONCE A DAY
     Route: 065
  4. VORICONAZOLE. [Suspect]
     Active Substance: VORICONAZOLE
     Dosage: UNK
     Route: 042
  5. CASPOFUNGIN [Concomitant]
     Active Substance: CASPOFUNGIN
     Indication: ASPERGILLUS INFECTION
  6. VORICONAZOLE. [Suspect]
     Active Substance: VORICONAZOLE
     Indication: ASPERGILLUS INFECTION
     Dosage: 400 MILLIGRAM, ONCE A DAY
     Route: 065
  7. VORICONAZOLE. [Suspect]
     Active Substance: VORICONAZOLE
     Dosage: 650 MILLIGRAM, ONCE A DAY,650 MG PER DAY DIVIDED INTO 2 INTAKES
     Route: 065
  8. AMPHOTERICIN B. [Suspect]
     Active Substance: AMPHOTERICIN B
     Indication: CEREBRAL ASPERGILLOSIS
     Dosage: UNK
     Route: 065
  9. CASPOFUNGIN [Concomitant]
     Active Substance: CASPOFUNGIN
     Indication: CEREBRAL ASPERGILLOSIS
     Dosage: 150 MILLIGRAM, ONCE A DAY
     Route: 065
  10. BENDAMUSTINE [Concomitant]
     Active Substance: BENDAMUSTINE
     Indication: CHRONIC LYMPHOCYTIC LEUKAEMIA
     Dosage: UNK,ONE CYCLE
     Route: 065
  11. VORICONAZOLE. [Suspect]
     Active Substance: VORICONAZOLE
     Dosage: 300 X 2, (REDUCED TO 200 MG B.I.D)
     Route: 048

REACTIONS (5)
  - Generalised tonic-clonic seizure [Unknown]
  - Cholestasis [Unknown]
  - Neutropenia [Unknown]
  - Treatment failure [Recovered/Resolved]
  - Drug level below therapeutic [Not Recovered/Not Resolved]
